FAERS Safety Report 5219165-7 (Version None)
Quarter: 2007Q1

REPORT INFORMATION
  Report Type: 
  Country: None (occurrence: None)
  Receive Date: 20070125
  Receipt Date: 20070122
  Transmission Date: 20070707
  Serious: Yes (Hospitalization)
  Sender: FDA-Public Use
  Company Number: JP-GLAXOSMITHKLINE-B0454942A

PATIENT
  Age: 6 Month
  Sex: Male
  Weight: 2.5 kg

DRUGS (15)
  1. EPIVIR [Suspect]
     Route: 048
     Dates: start: 20040928, end: 20041118
  2. RETROVIR [Suspect]
     Dosage: .38ML PER DAY
     Route: 042
     Dates: start: 20040923, end: 20040924
  3. RETROVIR [Suspect]
     Route: 048
     Dates: start: 20040926, end: 20041118
  4. RETROVIR [Suspect]
     Dosage: .7ML THREE TIMES PER DAY
     Route: 048
     Dates: start: 20041026, end: 20041118
  5. EPIVIR [Suspect]
     Indication: HIV INFECTION
     Dosage: 400MG PER DAY
     Dates: start: 20040922, end: 20040930
  6. RETROVIR [Suspect]
     Indication: HIV INFECTION
     Dosage: 300MG PER DAY
     Dates: start: 20040922, end: 20040930
  7. VIRAMUNE [Suspect]
     Dates: start: 20040922, end: 20040923
  8. VIRACEPT [Suspect]
     Route: 048
     Dates: start: 20040928, end: 20041118
  9. VIRACEPT [Suspect]
     Dosage: 280MG TWICE PER DAY
     Route: 048
     Dates: start: 20041026, end: 20041118
  10. MARIJUANA [Suspect]
  11. VIRAMUNE [Concomitant]
     Dosage: 5MG PER DAY
     Route: 048
     Dates: start: 20040925, end: 20040925
  12. BACTRIM [Concomitant]
     Dosage: .45G TWICE PER DAY
     Route: 048
     Dates: start: 20041108, end: 20050526
  13. ESPO [Concomitant]
     Dosage: .47ML PER DAY
     Route: 058
     Dates: start: 20041022, end: 20041121
  14. GLUCOSE [Concomitant]
     Dosage: 1.52ML PER DAY
     Route: 042
     Dates: start: 20040923, end: 20040924
  15. GLUCOSE [Concomitant]
     Dates: start: 20040922, end: 20040923

REACTIONS (3)
  - ANAEMIA [None]
  - DRUG EXPOSURE DURING PREGNANCY [None]
  - EPILEPSY [None]
